FAERS Safety Report 20600134 (Version 2)
Quarter: 2022Q2

REPORT INFORMATION
  Report Type: Spontaneous
  Country: US (occurrence: US)
  Receive Date: 20220316
  Receipt Date: 20220404
  Transmission Date: 20220721
  Serious: No
  Sender: FDA-Public Use
  Company Number: US-ORGANON-O2203USA001339

PATIENT
  Age: 19 Year
  Sex: Female
  Weight: 61.95 kg

DRUGS (4)
  1. NEXPLANON [Suspect]
     Active Substance: ETONOGESTREL
     Indication: Contraception
     Dosage: 68 MG  IMPLANT IN RIGHT ARM
     Route: 059
     Dates: start: 202105, end: 20220315
  2. NEXPLANON [Suspect]
     Active Substance: ETONOGESTREL
     Dosage: IMPLANT, IN THE RIGHT ARM
     Route: 059
     Dates: end: 20220315
  3. NEXPLANON [Suspect]
     Active Substance: ETONOGESTREL
     Dosage: IMPLANT, IN THE LEFT ARM
     Route: 059
  4. IBUPROFEN [Concomitant]
     Active Substance: IBUPROFEN
     Dosage: UNK

REACTIONS (7)
  - Menstrual disorder [Not Recovered/Not Resolved]
  - Breast pain [Not Recovered/Not Resolved]
  - Device breakage [Recovered/Resolved]
  - Complication of device removal [Recovered/Resolved]
  - Device placement issue [Unknown]
  - Device use issue [Unknown]
  - Overdose [Unknown]

NARRATIVE: CASE EVENT DATE: 20210501
